FAERS Safety Report 5399174-8 (Version None)
Quarter: 2007Q3

REPORT INFORMATION
  Report Type: 
  Country: None (occurrence: None)
  Receive Date: 20070727
  Receipt Date: 20070720
  Transmission Date: 20080115
  Serious: Yes (Other)
  Sender: FDA-Public Use
  Company Number: US-ELI_LILLY_AND_COMPANY-US200707005089

PATIENT
  Age: 65 Year
  Sex: Female
  Weight: 74.829 kg

DRUGS (5)
  1. BYETTA [Suspect]
     Indication: TYPE 2 DIABETES MELLITUS
     Dosage: 5 UG, 2/D
     Route: 058
     Dates: start: 20050101, end: 20050101
  2. BYETTA [Suspect]
     Dosage: 10 UG, 2/D
     Route: 058
     Dates: start: 20050101
  3. HUMULIN 70/30 [Concomitant]
     Indication: DIABETES MELLITUS
     Dosage: 90 U, UNK
     Dates: start: 19850101
  4. HUMULIN 70/30 [Concomitant]
     Dosage: 16 U, 2/D
  5. METFORMIN HCL [Concomitant]
     Indication: DIABETES MELLITUS
     Dosage: 500 MG, 2/D
     Dates: start: 20020101

REACTIONS (8)
  - DECREASED APPETITE [None]
  - DIARRHOEA [None]
  - EARLY SATIETY [None]
  - EXOSTOSIS [None]
  - NAUSEA [None]
  - NERVE COMPRESSION [None]
  - SCIATICA [None]
  - WEIGHT DECREASED [None]
